FAERS Safety Report 4843766-9 (Version None)
Quarter: 2005Q4

REPORT INFORMATION
  Report Type: 
  Country: None (occurrence: None)
  Receive Date: 20051129
  Receipt Date: 20051116
  Transmission Date: 20060501
  Serious: Yes (Hospitalization)
  Sender: FDA-Public Use
  Company Number: GXKR2005GB01981

PATIENT
  Age: 54 Year
  Sex: Female

DRUGS (3)
  1. CITALOPRAM HYDROBROMIDE [Suspect]
     Indication: INCORRECT DOSE ADMINISTERED
     Dosage: 14-30 TABLETS OF 20 MG, ORAL
     Route: 048
     Dates: start: 20030601
  2. PREMPAK C                (ESTROGENS CONJUGATED, NORGESTREL) [Concomitant]
  3. ALCOHOL (ETHANOL) [Concomitant]

REACTIONS (8)
  - ALCOHOL POISONING [None]
  - ANGLE CLOSURE GLAUCOMA [None]
  - CORNEAL OEDEMA [None]
  - EYE PAIN [None]
  - MULTIPLE DRUG OVERDOSE INTENTIONAL [None]
  - PUPIL FIXED [None]
  - RETINAL HAEMORRHAGE [None]
  - VISION BLURRED [None]
